FAERS Safety Report 5442832-7 (Version None)
Quarter: 2007Q3

REPORT INFORMATION
  Report Type: 
  Country: None (occurrence: None)
  Receive Date: 20070830
  Receipt Date: 20070828
  Transmission Date: 20080115
  Serious: Yes (Hospitalization)
  Sender: FDA-Public Use
  Company Number: 2007001206

PATIENT
  Age: 79 Year
  Sex: Female
  Weight: 45.8133 kg

DRUGS (4)
  1. ERLOTINIB (TABLET) (ERLOTINIB HCL) [Suspect]
     Indication: METASTATIC NEOPLASM
     Dosage: 150 MG (QD), ORAL
     Route: 048
     Dates: start: 20070417, end: 20070702
  2. BEVACIZUMAB (INJECTION FOR INFUSION) [Suspect]
     Indication: NEOPLASM MALIGNANT
     Dosage: 15 MG/KG (Q3W), INTRAVENOUS
     Route: 042
     Dates: start: 20070417
  3. PACLITAXEL [Suspect]
     Dosage: 131.25 MG/M^2 (Q3W), INTRAVENOUS
     Route: 042
     Dates: start: 20070417
  4. CARBOPLATIN [Suspect]
     Dosage: 45 AUC (Q3W), INTRAVENOUS
     Route: 042
     Dates: start: 20070417

REACTIONS (5)
  - DEHYDRATION [None]
  - DIARRHOEA [None]
  - DYSPHAGIA [None]
  - DYSPNOEA [None]
  - VOMITING [None]
